FAERS Safety Report 16324576 (Version 1)
Quarter: 2019Q2

REPORT INFORMATION
  Report Type: Spontaneous
  Country: NL (occurrence: NL)
  Receive Date: 20190517
  Receipt Date: 20190517
  Transmission Date: 20190711
  Serious: Yes (Other)
  Sender: FDA-Public Use
  Company Number: NL-TEVA-2019-NL-1050643

PATIENT
  Age: 73 Year
  Sex: Male
  Weight: 84 kg

DRUGS (10)
  1. PROPRANOLOL RET [Concomitant]
     Dosage: 1 X 160 MG
  2. PREDNISON TABLET, 20 MG (MILLIGRAM) [Suspect]
     Active Substance: PREDNISONE
     Indication: HYPERTHYROIDISM
     Dosage: 1X40 MG
     Dates: start: 20190106
  3. PRADAXA [Concomitant]
     Active Substance: DABIGATRAN ETEXILATE MESYLATE
     Dosage: 2 DD 1
  4. COVERSYL 10/2,5 MG [Concomitant]
  5. SIMVASTATINE [Concomitant]
     Active Substance: SIMVASTATIN
     Dosage: 1 X 20 MG
  6. THIAMAZOL [Concomitant]
     Active Substance: METHIMAZOLE
     Dosage: 1 X 60 MG
  7. NATRIUM PERCHLORAAT [Suspect]
     Active Substance: SODIUM PERCHLORATE
     Indication: HYPERTHYROIDISM
     Dosage: 3X500 MG
     Dates: start: 20190216, end: 20190223
  8. CALCIUM/COLECALCIFEOL 500/800 [Concomitant]
     Dosage: 1DD1
  9. OMEPRAZOL 40 MG [Concomitant]
     Active Substance: OMEPRAZOLE
     Dosage: 1 DD 1
  10. ALENDONINEZUUR [Concomitant]
     Dosage: 1X PER WEEK 70 MG

REACTIONS (2)
  - Haematochezia [Recovered/Resolved]
  - Proctalgia [Recovered/Resolved]

NARRATIVE: CASE EVENT DATE: 20190223
